FAERS Safety Report 23168134 (Version 1)
Quarter: 2023Q4

REPORT INFORMATION
  Report Type: Spontaneous
  Country: SK (occurrence: SK)
  Receive Date: 20231109
  Receipt Date: 20231109
  Transmission Date: 20240109
  Serious: Yes (Hospitalization)
  Sender: FDA-Public Use
  Company Number: SK-ELI_LILLY_AND_COMPANY-SK202310006254

PATIENT
  Age: 52 Year
  Sex: Female
  Weight: 80 kg

DRUGS (11)
  1. ABEMACICLIB [Suspect]
     Active Substance: ABEMACICLIB
     Indication: Breast cancer metastatic
     Dosage: 150 MG, BID
     Route: 048
     Dates: start: 20230818, end: 20230927
  2. ABEMACICLIB [Suspect]
     Active Substance: ABEMACICLIB
     Dosage: 150 MG, BID (RESTARTED)
     Route: 048
     Dates: start: 20231004
  3. FULVESTRANT [Concomitant]
     Active Substance: FULVESTRANT
     Indication: Breast cancer metastatic
  4. INDAPAMIDE\PERINDOPRIL ERBUMINE [Concomitant]
     Active Substance: INDAPAMIDE\PERINDOPRIL ERBUMINE
     Indication: Product used for unknown indication
  5. PERINDOPRIL [Concomitant]
     Active Substance: PERINDOPRIL
     Indication: Product used for unknown indication
  6. NEBIVOLOL [Concomitant]
     Active Substance: NEBIVOLOL
     Indication: Product used for unknown indication
  7. AMLODIPINE BESYLATE [Concomitant]
     Active Substance: AMLODIPINE BESYLATE
     Indication: Product used for unknown indication
  8. EUTHYROX [Concomitant]
     Active Substance: LEVOTHYROXINE SODIUM
     Indication: Product used for unknown indication
  9. DIETARY SUPPLEMENT\HERBALS\MILK THISTLE [Concomitant]
     Active Substance: MILK THISTLE
     Indication: Product used for unknown indication
  10. ALFACALCIDOL [Concomitant]
     Active Substance: ALFACALCIDOL
     Indication: Product used for unknown indication
  11. ALLOPURINOL [Concomitant]
     Active Substance: ALLOPURINOL
     Indication: Product used for unknown indication

REACTIONS (11)
  - Renal failure [Recovering/Resolving]
  - Back pain [Unknown]
  - Normocytic anaemia [Unknown]
  - Blood bilirubin increased [Unknown]
  - Blood cholesterol increased [Unknown]
  - Blood creatine phosphokinase increased [Unknown]
  - C-reactive protein increased [Unknown]
  - Alanine aminotransferase increased [Unknown]
  - Aspartate aminotransferase increased [Unknown]
  - Neutrophil count decreased [Unknown]
  - Diarrhoea [Unknown]
